FAERS Safety Report 5192365-0 (Version None)
Quarter: 2006Q4

REPORT INFORMATION
  Report Type: 
  Country: None (occurrence: None)
  Receive Date: 20061227
  Receipt Date: 20061215
  Transmission Date: 20070319
  Serious: Yes (Hospitalization)
  Sender: FDA-Public Use
  Company Number: SE-PFIZER INC-2006154159

PATIENT
  Sex: Female

DRUGS (9)
  1. DIFLUCAN [Suspect]
     Indication: SEPSIS
     Route: 042
     Dates: start: 20061003, end: 20061005
  2. NEXIUM [Suspect]
     Indication: PROPHYLAXIS
     Route: 042
     Dates: start: 20060925, end: 20061002
  3. EUSAPRIM [Suspect]
     Indication: SEPSIS
     Dosage: DAILY DOSE:20ML
     Route: 042
     Dates: start: 20061002, end: 20061009
  4. FLAGYL I.V. [Suspect]
     Indication: SEPSIS
     Route: 042
     Dates: start: 20061004, end: 20061009
  5. CIPROFLOXACIN HYDROCHLORIDE [Suspect]
     Indication: SEPSIS
     Route: 042
     Dates: start: 20060926, end: 20061001
  6. ACTRAPID [Concomitant]
  7. LEVAXIN [Concomitant]
  8. SIMVASTATIN [Concomitant]
  9. LANTUS [Concomitant]

REACTIONS (1)
  - CHOLESTASIS [None]
